FAERS Safety Report 11777958 (Version 4)
Quarter: 2016Q1

REPORT INFORMATION
  Report Type: Spontaneous
  Country: US (occurrence: US)
  Receive Date: 20151125
  Receipt Date: 20160218
  Transmission Date: 20160525
  Serious: Yes (Other)
  Sender: FDA-Public Use
  Company Number: US-PFIZER INC-2015399105

PATIENT
  Age: 56 Year
  Sex: Female
  Weight: 97 kg

DRUGS (3)
  1. INLYTA [Suspect]
     Active Substance: AXITINIB
     Dosage: 5 MG, 2X/DAY
     Route: 048
     Dates: start: 20151104
  2. INLYTA [Suspect]
     Active Substance: AXITINIB
     Indication: RENAL CANCER
     Dosage: 5 MG, 2X/DAY
     Route: 048
     Dates: start: 20151104
  3. INLYTA [Suspect]
     Active Substance: AXITINIB
     Dosage: 5 MG, DAILY
     Route: 048
     Dates: start: 20151111

REACTIONS (8)
  - Jaundice [Unknown]
  - Decreased appetite [Unknown]
  - Fatigue [Unknown]
  - Cardiac disorder [Unknown]
  - Nausea [Unknown]
  - Chest pain [Unknown]
  - Blood glucose increased [Unknown]
  - Pulmonary oedema [Unknown]

NARRATIVE: CASE EVENT DATE: 20151117
